FAERS Safety Report 5243454-3 (Version None)
Quarter: 2007Q1

REPORT INFORMATION
  Report Type: 
  Country: None (occurrence: None)
  Receive Date: 20070222
  Receipt Date: 20070208
  Transmission Date: 20070707
  Serious: Yes (Other)
  Sender: FDA-Public Use
  Company Number: PHFR2004GB03441

PATIENT
  Age: 38 Year
  Sex: Male

DRUGS (7)
  1. AMISULPRIDE [Suspect]
     Indication: SCHIZOPHRENIA
     Route: 065
     Dates: end: 20040928
  2. DIAZEPAM [Concomitant]
     Indication: AGITATION
     Route: 048
  3. PHENERGAN ^AVENTIS PHARMA^ [Concomitant]
     Dosage: 450MG/DAY
     Route: 048
  4. VALPROATE SODIUM [Concomitant]
     Dosage: 2000MG/DAY
     Route: 048
  5. HYOSCINE HBR HYT [Concomitant]
     Dosage: 300UG/DAY
     Route: 048
  6. CLOZARIL [Suspect]
     Indication: SCHIZOPHRENIA
     Dosage: 800MG/DAY
     Route: 048
     Dates: start: 20011030, end: 20060201
  7. CLOZARIL [Suspect]
     Dosage: RE-STARTED
     Route: 048
     Dates: start: 20070207

REACTIONS (11)
  - ALANINE AMINOTRANSFERASE INCREASED [None]
  - BLOOD CALCIUM DECREASED [None]
  - BLOOD CREATINE PHOSPHOKINASE INCREASED [None]
  - BLOOD PHOSPHORUS DECREASED [None]
  - BLOOD POTASSIUM INCREASED [None]
  - BLOOD UREA DECREASED [None]
  - HAEMOGLOBIN DECREASED [None]
  - MONOCYTE COUNT ABNORMAL [None]
  - NEUROLEPTIC MALIGNANT SYNDROME [None]
  - PLATELET COUNT DECREASED [None]
  - RED BLOOD CELL COUNT DECREASED [None]
